FAERS Safety Report 24332932 (Version 1)
Quarter: 2024Q3

REPORT INFORMATION
  Report Type: Spontaneous
  Country: US (occurrence: US)
  Receive Date: 20240918
  Receipt Date: 20240918
  Transmission Date: 20241017
  Serious: Yes (Hospitalization)
  Sender: PFIZER
  Company Number: US-PFIZER INC-202400258377

PATIENT
  Age: 44 Year
  Sex: Male

DRUGS (1)
  1. CIBINQO [Suspect]
     Active Substance: ABROCITINIB
     Dosage: CIBINQO 100 MG PO (PER ORAL) QD
     Route: 048
     Dates: start: 20240603

REACTIONS (1)
  - Eczema [Unknown]
